FAERS Safety Report 21971262 (Version 2)
Quarter: 2023Q1

REPORT INFORMATION
  Report Type: Spontaneous
  Country: DE (occurrence: DE)
  Receive Date: 20230209
  Receipt Date: 20230210
  Transmission Date: 20230417
  Serious: Yes (Hospitalization, Other)
  Sender: FDA-Public Use
  Company Number: DE-002147023-NVSC2022DE264362

PATIENT
  Age: 16 Year

DRUGS (22)
  1. ARIPIPRAZOLE [Interacting]
     Active Substance: ARIPIPRAZOLE
     Indication: Antipsychotic therapy
     Dosage: UNK
     Route: 065
  2. ARIPIPRAZOLE [Interacting]
     Active Substance: ARIPIPRAZOLE
     Indication: Autism spectrum disorder
  3. ARIPIPRAZOLE [Interacting]
     Active Substance: ARIPIPRAZOLE
     Indication: Impulse-control disorder
  4. ARIPIPRAZOLE [Interacting]
     Active Substance: ARIPIPRAZOLE
     Indication: Intellectual disability
  5. ARIPIPRAZOLE [Interacting]
     Active Substance: ARIPIPRAZOLE
     Indication: Stereotypy
  6. MELATONIN [Interacting]
     Active Substance: MELATONIN
     Indication: Autism spectrum disorder
     Dosage: UNK
     Route: 065
  7. MELATONIN [Interacting]
     Active Substance: MELATONIN
     Indication: Antipsychotic therapy
  8. QUETIAPINE [Suspect]
     Active Substance: QUETIAPINE
     Indication: Autism spectrum disorder
     Dosage: UNK
     Route: 065
  9. RISPERIDONE [Interacting]
     Active Substance: RISPERIDONE
     Indication: Autism spectrum disorder
     Dosage: UNK
     Route: 065
  10. RISPERIDONE [Interacting]
     Active Substance: RISPERIDONE
     Indication: Antipsychotic therapy
  11. LORAZEPAM [Interacting]
     Active Substance: LORAZEPAM
     Indication: Autism spectrum disorder
     Dosage: UNK
     Route: 065
  12. LORAZEPAM [Interacting]
     Active Substance: LORAZEPAM
     Indication: Antipsychotic therapy
  13. MELPERONE [Interacting]
     Active Substance: MELPERONE
     Indication: Antipsychotic therapy
     Dosage: UNK
     Route: 065
  14. MELPERONE [Interacting]
     Active Substance: MELPERONE
     Indication: Stereotypy
  15. MELPERONE [Interacting]
     Active Substance: MELPERONE
     Indication: Autism spectrum disorder
  16. MELPERONE [Interacting]
     Active Substance: MELPERONE
     Indication: Impulse-control disorder
  17. MELPERONE [Interacting]
     Active Substance: MELPERONE
     Indication: Intellectual disability
  18. MELPERONE [Interacting]
     Active Substance: MELPERONE
     Indication: Stereotypy
  19. PIPAMPERONE [Interacting]
     Active Substance: PIPAMPERONE
     Indication: Antipsychotic therapy
     Dosage: UNK
     Route: 065
  20. PIPAMPERONE [Interacting]
     Active Substance: PIPAMPERONE
     Indication: Stereotypy
  21. PIPAMPERONE [Interacting]
     Active Substance: PIPAMPERONE
     Indication: Impulse-control disorder
  22. PIPAMPERONE [Interacting]
     Active Substance: PIPAMPERONE
     Indication: Intellectual disability

REACTIONS (7)
  - Electrocardiogram QT prolonged [Unknown]
  - Salivary hypersecretion [Unknown]
  - Drug interaction [Unknown]
  - Extrapyramidal disorder [Unknown]
  - Off label use [Unknown]
  - Medication error [Unknown]
  - Product use issue [Unknown]
